FAERS Safety Report 19577446 (Version 4)
Quarter: 2024Q2

REPORT INFORMATION
  Report Type: Report from Study
  Country: DE (occurrence: DE)
  Receive Date: 20210719
  Receipt Date: 20240401
  Transmission Date: 20240716
  Serious: Yes (Hospitalization, Other)
  Sender: FDA-Public Use
  Company Number: None

PATIENT
  Age: 52 Year
  Sex: Female
  Weight: 62 kg

DRUGS (14)
  1. PANTOPRAZOLE [Suspect]
     Active Substance: PANTOPRAZOLE
     Indication: Product used for unknown indication
     Route: 065
  2. CORTISONE [Suspect]
     Active Substance: CORTISONE
     Indication: Product used for unknown indication
     Dosage: ALTERNATIVE TO VOLON A
     Route: 065
     Dates: start: 20200810, end: 20200813
  3. OCREVUS [Suspect]
     Active Substance: OCRELIZUMAB
     Indication: Relapsing-remitting multiple sclerosis
     Route: 042
     Dates: start: 20201028
  4. CANNABIS SATIVA FLOWERING TOP [Concomitant]
     Active Substance: CANNABIS SATIVA FLOWERING TOP
     Indication: Product used for unknown indication
     Dosage: SEVERAL TIMES PER DAY AND IN THE NIGHT
     Route: 065
  5. COTRIMOXAZOLE [Concomitant]
     Active Substance: SULFAMETHOXAZOLE\TRIMETHOPRIM
     Indication: Product used for unknown indication
     Dosage: UNKNOWN
     Route: 065
  6. CHOLECALCIFEROL [Concomitant]
     Active Substance: CHOLECALCIFEROL
     Indication: Product used for unknown indication
     Route: 065
  7. DOMPERIDONE [Concomitant]
     Active Substance: DOMPERIDONE
     Indication: Product used for unknown indication
     Dosage: UNKNOWN
     Route: 065
  8. FOLIC ACID [Concomitant]
     Active Substance: FOLIC ACID
     Indication: Product used for unknown indication
     Route: 065
  9. IBUPROFEN [Concomitant]
     Active Substance: IBUPROFEN
     Indication: Product used for unknown indication
     Dosage: UNKNOWN
     Route: 065
  10. NOVALGIN [Concomitant]
     Indication: Product used for unknown indication
     Dosage: UNKNOWN
     Route: 065
  11. OXYCODONE [Concomitant]
     Active Substance: OXYCODONE\OXYCODONE HYDROCHLORIDE
     Indication: Product used for unknown indication
     Dosage: 5 MG AS NEEDED (UP TO 4 TABLETS DAILY) AS REQUIRED
     Route: 065
  12. ALBUTEROL [Concomitant]
     Active Substance: ALBUTEROL
     Indication: Product used for unknown indication
     Dosage: UNKNOWN
     Route: 065
  13. LACTIC ACID, DL-\SODIUM LACTATE [Concomitant]
     Active Substance: LACTIC ACID, DL-\SODIUM LACTATE
     Indication: Product used for unknown indication
     Dosage: UNKNOWN
     Route: 066
  14. TRIAMCINOLONE ACETONIDE [Concomitant]
     Active Substance: TRIAMCINOLONE ACETONIDE
     Indication: Product used for unknown indication
     Route: 065
     Dates: start: 20200409

REACTIONS (70)
  - Arthralgia [Recovered/Resolved]
  - Endometrial thickening [Not Recovered/Not Resolved]
  - Fluid retention [Not Recovered/Not Resolved]
  - Blood cholesterol increased [Recovered/Resolved]
  - Cushing^s syndrome [Not Recovered/Not Resolved]
  - Muscle spasticity [Recovered/Resolved]
  - Bone density increased [Not Recovered/Not Resolved]
  - Dizziness [Recovered/Resolved]
  - Alopecia [Recovered/Resolved]
  - Diarrhoea [Recovered/Resolved]
  - Injection site erythema [Recovered/Resolved]
  - Paraesthesia [Recovered/Resolved]
  - Gastritis erosive [Recovered/Resolved]
  - Body fat disorder [Not Recovered/Not Resolved]
  - Weight increased [Not Recovered/Not Resolved]
  - Periorbital swelling [Not Recovered/Not Resolved]
  - Cataract [Not Recovered/Not Resolved]
  - Pain in extremity [Recovered/Resolved]
  - Rash [Recovered/Resolved]
  - Gait disturbance [Not Recovered/Not Resolved]
  - Insomnia [Recovered/Resolved]
  - Dry skin [Recovered/Resolved]
  - Irritability [Not Recovered/Not Resolved]
  - Bone pain [Recovered/Resolved]
  - Muscular weakness [Recovered/Resolved]
  - Calcinosis [Recovered/Resolved]
  - B-lymphocyte count decreased [Recovered/Resolved]
  - Asthenia [Recovered/Resolved]
  - Urinary tract infection bacterial [Recovered/Resolved]
  - Mobility decreased [Recovered/Resolved]
  - Injection site warmth [Recovered/Resolved]
  - Initial insomnia [Recovered/Resolved]
  - Cystitis noninfective [Not Recovered/Not Resolved]
  - Urinary tract infection [Recovered/Resolved]
  - Gamma-glutamyltransferase increased [Recovered/Resolved]
  - Muscle twitching [Recovered/Resolved]
  - Urogenital fistula [Recovered/Resolved]
  - Bone density decreased [Not Recovered/Not Resolved]
  - Cystitis [Not Recovered/Not Resolved]
  - Throat irritation [Recovered/Resolved]
  - Chronic gastritis [Not Recovered/Not Resolved]
  - Pyrexia [Unknown]
  - Lymphocyte count decreased [Recovered/Resolved]
  - Asthenia [Not Recovered/Not Resolved]
  - Pain [Recovered/Resolved]
  - Uterine enlargement [Recovered/Resolved]
  - Nasopharyngitis [Recovered/Resolved]
  - Cataract [Not Recovered/Not Resolved]
  - Osteoporosis [Not Recovered/Not Resolved]
  - Faeces soft [Recovered/Resolved]
  - Throat tightness [Recovered/Resolved]
  - Intestinal atony [Unknown]
  - Atypical migraine [Unknown]
  - Oropharyngeal pain [Recovered/Resolved]
  - Folate deficiency [Recovered/Resolved]
  - Blood pressure increased [Recovered/Resolved]
  - Oral herpes [Recovered/Resolved]
  - Flatulence [Recovered/Resolved]
  - Intervertebral disc protrusion [Recovered/Resolved]
  - Wound [Recovered/Resolved]
  - Platelet count increased [Recovered/Resolved]
  - Muscular weakness [Not Recovered/Not Resolved]
  - Off label use [Unknown]
  - Vitamin D decreased [Recovered/Resolved]
  - Urine odour abnormal [Recovering/Resolving]
  - Chills [Unknown]
  - Seborrhoeic keratosis [Unknown]
  - Tooth fracture [Recovered/Resolved]
  - SARS-CoV-2 antibody test negative [Not Recovered/Not Resolved]
  - Platelet count decreased [Recovered/Resolved]

NARRATIVE: CASE EVENT DATE: 20180523
